FAERS Safety Report 8432685-7 (Version None)
Quarter: 2012Q2

REPORT INFORMATION
  Report Type: 
  Country: None (occurrence: None)
  Receive Date: 20120323
  Receipt Date: 20110602
  Transmission Date: 20120825
  Serious: Yes (Other)
  Sender: FDA-Public Use
  Company Number: 163-21880-11060507

PATIENT
  Age: 64 Year
  Sex: Male
  Weight: 127.9144 kg

DRUGS (11)
  1. WARFARIN SODIUM [Concomitant]
  2. NIACIN (NICOTINIC ACID) (UNKNOWN) [Concomitant]
  3. INSULIN (INSULIN) (UNKNOWN) [Concomitant]
  4. HCTZ (HYDROCHLOROTHIAZIDE) (UNKNOWN) [Concomitant]
  5. NTG (GLYCERYL TRINITRATE) (UNKNOWN) [Concomitant]
  6. FOLIC ACID (FOLIC ACID) (UNKNOWN) [Concomitant]
  7. DECADRON [Concomitant]
  8. ALLOPURINOL [Concomitant]
  9. REVLIMID [Suspect]
     Indication: MULTIPLE MYELOMA
     Dosage: 15 MG, 1 IN 1 D, PO 2.5 MG, 1 IN 2 D, PO
     Route: 048
     Dates: start: 20110101, end: 20110101
  10. REVLIMID [Suspect]
     Indication: MULTIPLE MYELOMA
     Dosage: 15 MG, 1 IN 1 D, PO 2.5 MG, 1 IN 2 D, PO
     Route: 048
     Dates: start: 20110101
  11. ATENOLOL [Concomitant]

REACTIONS (2)
  - FULL BLOOD COUNT DECREASED [None]
  - PANCYTOPENIA [None]
